FAERS Safety Report 9308137 (Version 1)
Quarter: 2013Q2

REPORT INFORMATION
  Report Type: Spontaneous
  Country: US (occurrence: US)
  Receive Date: 20130524
  Receipt Date: 20130524
  Transmission Date: 20140414
  Serious: Yes (Life-Threatening, Congenital Anomaly, Other)
  Sender: FDA-Public Use
  Company Number: US-PFIZER INC-2013158009

PATIENT
  Sex: Male

DRUGS (2)
  1. EFFEXOR [Suspect]
     Dosage: UNK
     Route: 064
  2. VENLAFAXINE HCL [Suspect]
     Dosage: UNK
     Route: 064

REACTIONS (3)
  - Maternal exposure during pregnancy [Unknown]
  - Pyloric stenosis [Unknown]
  - Congenital anomaly [Unknown]
